FAERS Safety Report 9617453 (Version 2)
Quarter: 2013Q4

REPORT INFORMATION
  Report Type: Spontaneous
  Country: US (occurrence: None)
  Receive Date: 20131009
  Receipt Date: 20131028
  Transmission Date: 20140711
  Serious: Yes (Other)
  Sender: FDA-Public Use
  Company Number: SYM-2013-11328

PATIENT
  Sex: Female

DRUGS (1)
  1. DIAZEPAM [Suspect]
     Indication: EPILEPSY
     Dosage: 10 MG, 1 IN 1
     Dates: start: 201305

REACTIONS (3)
  - Convulsion [None]
  - Drug ineffective [None]
  - Product substitution issue [None]
